FAERS Safety Report 11064014 (Version 1)
Quarter: 2015Q2

REPORT INFORMATION
  Report Type: Spontaneous
  Country: US (occurrence: US)
  Receive Date: 20150424
  Receipt Date: 20150424
  Transmission Date: 20150821
  Serious: No
  Sender: FDA-Public Use
  Company Number: US-ALKERMES INC.-ALK-2015-004192

PATIENT

DRUGS (1)
  1. VIVITROL [Suspect]
     Active Substance: NALTREXONE
     Indication: DRUG DEPENDENCE
     Dosage: 380 MG, QMO
     Route: 030
     Dates: start: 20150131

REACTIONS (10)
  - Tearfulness [Not Recovered/Not Resolved]
  - Depression [Not Recovered/Not Resolved]
  - Dizziness [Not Recovered/Not Resolved]
  - Nausea [Not Recovered/Not Resolved]
  - Feeling abnormal [Not Recovered/Not Resolved]
  - Disturbance in attention [Not Recovered/Not Resolved]
  - Insomnia [Not Recovered/Not Resolved]
  - Vision blurred [Not Recovered/Not Resolved]
  - Decreased appetite [Not Recovered/Not Resolved]
  - Autophobia [Not Recovered/Not Resolved]

NARRATIVE: CASE EVENT DATE: 20150131
